FAERS Safety Report 6178905-3 (Version None)
Quarter: 2009Q2

REPORT INFORMATION
  Report Type: 
  Country: None (occurrence: None)
  Receive Date: 20090505
  Receipt Date: 20090423
  Transmission Date: 20091009
  Serious: Yes (Hospitalization)
  Sender: FDA-Public Use
  Company Number: AR-PFIZER INC-2009167620

PATIENT

DRUGS (6)
  1. SUNITINIB MALATE [Suspect]
     Indication: BREAST CANCER
     Dosage: 37.5 MG, 1X/DAY
     Route: 048
     Dates: start: 20090108
  2. FENTANYL [Concomitant]
     Dosage: UNK
     Route: 062
     Dates: start: 20090119, end: 20090205
  3. LOPERAMIDE HYDROCHLORIDE [Concomitant]
     Dosage: UNK
     Route: 048
     Dates: start: 20090119
  4. ALPRAZOLAM [Concomitant]
     Dosage: UNK
     Route: 048
     Dates: start: 20080904
  5. IBUPROFEN [Concomitant]
     Dosage: UNK
     Route: 048
     Dates: start: 20090119, end: 20090205
  6. SULFADIAZINE [Concomitant]
     Dosage: UNK
     Route: 061
     Dates: start: 20090119

REACTIONS (3)
  - CONFUSIONAL STATE [None]
  - DEHYDRATION [None]
  - DIARRHOEA [None]
